FAERS Safety Report 20478156 (Version 3)
Quarter: 2025Q1

REPORT INFORMATION
  Report Type: Spontaneous
  Country: US (occurrence: US)
  Receive Date: 20220216
  Receipt Date: 20250102
  Transmission Date: 20250408
  Serious: Yes (Hospitalization)
  Sender: BRISTOL-MYERS SQUIBB COMPANY
  Company Number: US-BRISTOL-MYERS SQUIBB COMPANY-BMS-2022-018207

PATIENT
  Age: 62 Year
  Sex: Male

DRUGS (3)
  1. DASATINIB [Suspect]
     Active Substance: DASATINIB
     Indication: Acute lymphocytic leukaemia
     Dosage: UNK
     Route: 048
     Dates: start: 20220112
  2. DASATINIB [Suspect]
     Active Substance: DASATINIB
     Dosage: 70 MILLIGRAM DAILY
     Route: 048
     Dates: start: 202201
  3. NIVESTYM [FILGRASTIM] [Concomitant]
     Indication: Acute lymphocytic leukaemia

REACTIONS (2)
  - Adverse event [Unknown]
  - Hospitalisation [Unknown]
